FAERS Safety Report 7772040-6 (Version None)
Quarter: 2011Q3

REPORT INFORMATION
  Report Type: 
  Country: None (occurrence: None)
  Receive Date: 20110922
  Receipt Date: 20110621
  Transmission Date: 20111222
  Serious: No
  Sender: FDA-Public Use
  Company Number: US-ASTRAZENECA-2011SE38138

PATIENT
  Age: 19 Year
  Sex: Female

DRUGS (2)
  1. SEROQUEL [Suspect]
     Indication: BIPOLAR DISORDER
     Route: 048
  2. CELEXA [Concomitant]

REACTIONS (3)
  - DRUG DOSE OMISSION [None]
  - MATERNAL EXPOSURE DURING PREGNANCY [None]
  - MENTAL DISORDER [None]
